FAERS Safety Report 7248275-8 (Version None)
Quarter: 2011Q1

REPORT INFORMATION
  Report Type: 
  Country: None (occurrence: None)
  Receive Date: 20110127
  Receipt Date: 20101214
  Transmission Date: 20110831
  Serious: Yes (Death, Other)
  Sender: FDA-Public Use
  Company Number: US-BAXTER-2010BH006478

PATIENT
  Age: 86 Year
  Sex: Female

DRUGS (35)
  1. ONDANSETRON HYDROCHLORIDE [Concomitant]
     Indication: PRODUCT USED FOR UNKNOWN INDICATION
     Route: 065
  2. LACTULOSE [Concomitant]
     Indication: PRODUCT USED FOR UNKNOWN INDICATION
     Route: 048
  3. PANTOPRAZOLE [Concomitant]
     Indication: PRODUCT USED FOR UNKNOWN INDICATION
     Route: 065
  4. DEXTROSE 5% AND SODIUM CHLORIDE 0.45% IN PLASTIC CONTAINER [Concomitant]
     Indication: PRODUCT USED FOR UNKNOWN INDICATION
     Route: 042
     Dates: start: 20071015, end: 20071015
  5. NOVOLIN R [Concomitant]
     Indication: BLOOD GLUCOSE
     Route: 058
  6. FLAGYL [Concomitant]
     Indication: PRODUCT USED FOR UNKNOWN INDICATION
     Route: 048
  7. LOVASTATIN [Concomitant]
     Indication: PRODUCT USED FOR UNKNOWN INDICATION
     Route: 065
  8. PROMETHAZINE [Concomitant]
     Indication: PRODUCT USED FOR UNKNOWN INDICATION
     Route: 065
  9. ZEMPLAR [Concomitant]
     Indication: PRODUCT USED FOR UNKNOWN INDICATION
     Route: 065
  10. HEPARIN SODIUM INJECTION [Suspect]
     Indication: HAEMODIALYSIS
     Route: 040
     Dates: start: 20001015, end: 20071102
  11. HEPARIN SODIUM INJECTION [Suspect]
     Route: 042
     Dates: start: 20071015, end: 20071102
  12. HEPARIN SODIUM INJECTION [Suspect]
     Route: 042
     Dates: start: 20071016, end: 20071016
  13. TERAZOSIN HCL [Concomitant]
     Indication: PRODUCT USED FOR UNKNOWN INDICATION
     Route: 065
  14. LEVOTHYROXINE SODIUM [Concomitant]
     Indication: PRODUCT USED FOR UNKNOWN INDICATION
     Route: 065
  15. GLIPIZIDE [Concomitant]
     Indication: PRODUCT USED FOR UNKNOWN INDICATION
     Route: 065
  16. AMLODIPINE BESYLATE [Concomitant]
     Indication: PRODUCT USED FOR UNKNOWN INDICATION
     Route: 065
  17. TYLENOL-500 [Concomitant]
     Indication: PRODUCT USED FOR UNKNOWN INDICATION
     Route: 065
  18. JANUVIA [Concomitant]
     Indication: PRODUCT USED FOR UNKNOWN INDICATION
     Route: 048
  19. FUROSEMIDE [Concomitant]
     Indication: PRODUCT USED FOR UNKNOWN INDICATION
     Route: 065
  20. HYDROCODONE [Concomitant]
     Indication: PRODUCT USED FOR UNKNOWN INDICATION
     Route: 065
  21. HEPARIN SODIUM INJECTION [Suspect]
     Route: 042
     Dates: start: 20071021, end: 20071021
  22. HEPARIN SODIUM INJECTION [Suspect]
     Route: 042
     Dates: start: 20071020, end: 20071025
  23. GLYBURIDE [Concomitant]
     Indication: PRODUCT USED FOR UNKNOWN INDICATION
     Route: 065
  24. LISINOPRIL [Concomitant]
     Indication: PRODUCT USED FOR UNKNOWN INDICATION
     Route: 065
  25. DOPAMINE [Concomitant]
     Indication: PRODUCT USED FOR UNKNOWN INDICATION
     Route: 065
  26. COLACE [Concomitant]
     Indication: PRODUCT USED FOR UNKNOWN INDICATION
     Route: 048
  27. ACETAMINOPHEN [Concomitant]
     Indication: PRODUCT USED FOR UNKNOWN INDICATION
     Route: 048
  28. HEPARIN SODIUM INJECTION [Suspect]
     Route: 042
     Dates: start: 20071015, end: 20071102
  29. HEPARIN SODIUM INJECTION [Suspect]
     Route: 042
     Dates: start: 20071020, end: 20071020
  30. LEXAPRO [Concomitant]
     Indication: PRODUCT USED FOR UNKNOWN INDICATION
     Route: 065
  31. EPOGEN [Concomitant]
     Indication: PRODUCT USED FOR UNKNOWN INDICATION
     Route: 065
  32. HEPARIN SODIUM INJECTION [Suspect]
     Route: 065
  33. OMEPRAZOLE [Concomitant]
     Indication: PRODUCT USED FOR UNKNOWN INDICATION
     Route: 065
  34. LOVASTIN [Concomitant]
     Indication: PRODUCT USED FOR UNKNOWN INDICATION
     Route: 065
  35. ZOFRAN [Concomitant]
     Indication: NAUSEA
     Route: 042

REACTIONS (24)
  - ENCEPHALOPATHY [None]
  - CHEST PAIN [None]
  - NAUSEA [None]
  - PAIN IN EXTREMITY [None]
  - SEPSIS [None]
  - ASTHENIA [None]
  - PNEUMONIA [None]
  - DYSPNOEA [None]
  - HEART RATE INCREASED [None]
  - ISCHAEMIC CARDIOMYOPATHY [None]
  - FLUID OVERLOAD [None]
  - SWELLING FACE [None]
  - CARDIOPULMONARY FAILURE [None]
  - CARDIAC FAILURE CONGESTIVE [None]
  - HYPOTENSION [None]
  - WHEEZING [None]
  - MUSCLE SPASMS [None]
  - RESPIRATORY FAILURE [None]
  - THROMBOSIS IN DEVICE [None]
  - VOMITING [None]
  - DIARRHOEA [None]
  - ABDOMINAL PAIN [None]
  - HEADACHE [None]
  - DIZZINESS [None]
